FAERS Safety Report 9448338 (Version 1)
Quarter: 2013Q3

REPORT INFORMATION
  Report Type: Report from Study
  Country: CO (occurrence: CO)
  Receive Date: 20130808
  Receipt Date: 20130808
  Transmission Date: 20140515
  Serious: Yes (Hospitalization)
  Sender: FDA-Public Use
  Company Number: CO-SANOFI-AVENTIS-2013SA077738

PATIENT
  Age: 63 Year
  Sex: Male

DRUGS (4)
  1. LANTUS [Suspect]
     Indication: DIABETES MELLITUS
     Dosage: DOSE:15 UNIT(S)
     Route: 058
     Dates: start: 201207
  2. NOVORAPID [Suspect]
     Indication: DIABETES MELLITUS
     Dosage: DOSE:12 UNIT(S)
     Route: 058
  3. RANITIDINE [Concomitant]
     Indication: GASTRITIS
     Route: 048
  4. ACETYLSALICYLIC ACID [Concomitant]
     Route: 048

REACTIONS (2)
  - Back pain [Recovered/Resolved]
  - Hyperglycaemia [Not Recovered/Not Resolved]
